FAERS Safety Report 6223335-9 (Version None)
Quarter: 2009Q2

REPORT INFORMATION
  Report Type: 
  Country: None (occurrence: None)
  Receive Date: 20090611
  Receipt Date: 20090605
  Transmission Date: 20091009
  Serious: Yes (Hospitalization)
  Sender: FDA-Public Use
  Company Number: BR-ABBOTT-09P-020-0578190-00

PATIENT
  Age: 54 Year
  Sex: Female
  Weight: 80 kg

DRUGS (5)
  1. DEPAKOTE [Suspect]
     Indication: EPILEPSY
     Route: 048
     Dates: start: 20070101, end: 20090101
  2. RIVOTRIL [Concomitant]
     Indication: SEDATIVE THERAPY
     Route: 048
  3. LEVITEN [Concomitant]
     Indication: PROPHYLAXIS
     Route: 048
  4. LEVITEN [Concomitant]
     Indication: BREAST MASS
  5. LEVOTHYROXINE [Concomitant]
     Indication: HYPOTHYROIDISM
     Route: 048

REACTIONS (5)
  - CONVULSION [None]
  - FALL [None]
  - HEADACHE [None]
  - LOSS OF CONSCIOUSNESS [None]
  - SWELLING [None]
